FAERS Safety Report 8211462-6 (Version None)
Quarter: 2012Q1

REPORT INFORMATION
  Report Type: 
  Country: None (occurrence: None)
  Receive Date: 20120229
  Receipt Date: 20111108
  Transmission Date: 20120608
  Serious: Yes (Other)
  Sender: FDA-Public Use
  Company Number: US-JNJFOC-20100604481

PATIENT
  Age: 42 Year
  Sex: Male
  Weight: 105 kg

DRUGS (10)
  1. MIRALAX [Concomitant]
  2. OXYCONTIN [Concomitant]
  3. CELEXA [Concomitant]
  4. CRIZOTINIB (ANTINEOPLASTIC AGENTS) [Suspect]
     Indication: SMALL CELL LUNG CANCER STAGE UNSPECIFIED
     Dosage: 250 MG, 2 IN 1 DAY, ORAL 200 MG, 2 IN 1 DAY, ORAL 150 MG,  2 IN 1 DAY, ORAL
     Route: 048
     Dates: start: 20100702
  5. CRIZOTINIB (ANTINEOPLASTIC AGENTS) [Suspect]
     Indication: SMALL CELL LUNG CANCER STAGE UNSPECIFIED
     Dosage: 250 MG, 2 IN 1 DAY, ORAL 200 MG, 2 IN 1 DAY, ORAL 150 MG,  2 IN 1 DAY, ORAL
     Route: 048
     Dates: start: 20100618, end: 20100621
  6. CRIZOTINIB (ANTINEOPLASTIC AGENTS) [Suspect]
     Indication: SMALL CELL LUNG CANCER STAGE UNSPECIFIED
     Dosage: 250 MG, 2 IN 1 DAY, ORAL 200 MG, 2 IN 1 DAY, ORAL 150 MG,  2 IN 1 DAY, ORAL
     Route: 048
     Dates: start: 20100422, end: 20100515
  7. CRIZOTINIB (ANTINEOPLASTIC AGENTS) [Suspect]
     Indication: SMALL CELL LUNG CANCER STAGE UNSPECIFIED
     Dosage: 250 MG, 2 IN 1 DAY, ORAL 200 MG, 2 IN 1 DAY, ORAL 150 MG,  2 IN 1 DAY, ORAL
     Route: 048
     Dates: start: 20100707
  8. MOTRIN [Suspect]
     Indication: FLANK PAIN
     Dosage: 400 MG, 3 IN 1 DAY, ORAL
     Route: 048
     Dates: start: 20080923, end: 20100527
  9. OXYCODONE HCL [Concomitant]
  10. ATIVAN [Concomitant]

REACTIONS (2)
  - ASPARTATE AMINOTRANSFERASE INCREASED [None]
  - ALANINE AMINOTRANSFERASE INCREASED [None]
